FAERS Safety Report 7831010-X (Version None)
Quarter: 2011Q4

REPORT INFORMATION
  Report Type: 
  Country: None (occurrence: None)
  Receive Date: 20111021
  Receipt Date: 20111017
  Transmission Date: 20120403
  Serious: Yes (Other)
  Sender: FDA-Public Use
  Company Number: JP-PFIZER INC-2011214656

PATIENT
  Age: 73 Year
  Sex: Male
  Weight: 44.5 kg

DRUGS (10)
  1. LASIX [Concomitant]
     Dosage: 40 MG, 1X/DAY
     Route: 048
  2. POLARAMINE [Concomitant]
     Indication: PROPHYLAXIS
     Dosage: 5 MG, 1X/DAY
     Route: 030
     Dates: start: 20110420
  3. CONIEL [Concomitant]
     Dosage: 4 MG, 1X/DAY
     Route: 048
  4. ETODOLAC [Concomitant]
     Indication: PROPHYLAXIS
     Dosage: 100 MG, 2X/DAY
     Route: 048
  5. TEMSIROLIMUS [Suspect]
     Indication: RENAL CELL CARCINOMA
     Dosage: 25 MG, WEEKLY
     Route: 041
     Dates: start: 20110420
  6. MIYA BM [Concomitant]
     Dosage: 1.0 G, 3X/DAY
     Route: 048
  7. SELBEX [Concomitant]
     Dosage: 0.5 G, 3X/DAY
     Route: 048
  8. FENTOS TAPE [Concomitant]
     Indication: PROPHYLAXIS
     Dosage: 3 MG, 1X/DAY
     Route: 062
  9. TAKEPRON [Concomitant]
     Dosage: 15 MG, 1X/DAY
     Route: 048
  10. NAPROXEN [Concomitant]
     Indication: PROPHYLAXIS
     Dosage: 100 MG, 3X/DAY
     Route: 048

REACTIONS (1)
  - HYPERKALAEMIA [None]
